FAERS Safety Report 5509898-7 (Version None)
Quarter: 2007Q4

REPORT INFORMATION
  Report Type: 
  Country: None (occurrence: None)
  Receive Date: 20071108
  Receipt Date: 20071101
  Transmission Date: 20080405
  Serious: Yes (Hospitalization)
  Sender: FDA-Public Use
  Company Number: CH-AVENTIS-200720178GDDC

PATIENT
  Age: 82 Year
  Sex: Male

DRUGS (6)
  1. AMARYL [Suspect]
     Route: 048
     Dates: end: 20070401
  2. GLUCOPHAGE [Suspect]
     Route: 048
     Dates: end: 20070401
  3. RENITEN                            /00574902/ [Suspect]
     Dosage: DOSE QUANTITY: 1
     Route: 048
     Dates: end: 20070401
  4. TOREM                              /01036501/ [Suspect]
     Dosage: DOSE QUANTITY: 1
     Route: 048
  5. PANTOZOL                           /01263202/ [Concomitant]
     Route: 048
  6. SOTALOL HCL [Concomitant]
     Route: 048

REACTIONS (3)
  - HYPOGLYCAEMIA [None]
  - METABOLIC ACIDOSIS [None]
  - RENAL FAILURE ACUTE [None]
